FAERS Safety Report 7942178-9 (Version None)
Quarter: 2011Q4

REPORT INFORMATION
  Report Type: 
  Country: None (occurrence: None)
  Receive Date: 20111123
  Receipt Date: 20111123
  Transmission Date: 20120403
  Serious: Yes (Life-Threatening, Hospitalization, Other)
  Sender: FDA-Public Use
  Company Number: None

PATIENT
  Age: 48 Year
  Sex: Male
  Weight: 90.7194 kg

DRUGS (2)
  1. PRISTIQ [Suspect]
     Indication: DEPRESSION
     Dosage: 50 MG 1 A DAY ORAL
     Route: 048
     Dates: start: 20110428
  2. PRISTIQ [Suspect]
     Indication: DEPRESSION
     Dosage: 50 MG 1 A DAY ORAL
     Route: 048
     Dates: start: 20110301

REACTIONS (5)
  - SUICIDE ATTEMPT [None]
  - HALLUCINATION, AUDITORY [None]
  - VOMITING [None]
  - DEPRESSION [None]
  - LOSS OF CONSCIOUSNESS [None]
